FAERS Safety Report 24856359 (Version 2)
Quarter: 2025Q3

REPORT INFORMATION
  Report Type: Spontaneous
  Country: CN (occurrence: CN)
  Receive Date: 20250117
  Receipt Date: 20250714
  Transmission Date: 20251020
  Serious: Yes (Other)
  Sender: PFIZER
  Company Number: CN-PFIZER INC-PV202500007210

PATIENT
  Age: 54 Year
  Sex: Male
  Weight: 70 kg

DRUGS (2)
  1. TIGECYCLINE [Suspect]
     Active Substance: TIGECYCLINE
     Indication: Infection
     Dosage: 100 MG, 2X/DAY
     Route: 041
     Dates: start: 20250106, end: 20250112
  2. POLYMYXIN B SULFATE [Concomitant]
     Active Substance: POLYMYXIN B SULFATE
     Dosage: 75WU, 2X/DAY
     Route: 041
     Dates: start: 20250106

REACTIONS (1)
  - Coagulation time prolonged [Unknown]

NARRATIVE: CASE EVENT DATE: 20250109
